FAERS Safety Report 19954503 (Version 3)
Quarter: 2022Q2

REPORT INFORMATION
  Report Type: Report from Study
  Country: US (occurrence: US)
  Receive Date: 20211014
  Receipt Date: 20220402
  Transmission Date: 20220721
  Serious: Yes (Other)
  Sender: FDA-Public Use
  Company Number: US-NOVARTISPH-NVSC2021US233617

PATIENT
  Sex: Male

DRUGS (1)
  1. OMNITROPE [Suspect]
     Active Substance: SOMATROPIN
     Indication: Short stature
     Dosage: 2 MG, QD
     Route: 058
     Dates: start: 20210927, end: 20211011

REACTIONS (2)
  - Syncope [Unknown]
  - Injection site pain [Unknown]
